FAERS Safety Report 14708505 (Version 2)
Quarter: 2018Q2

REPORT INFORMATION
  Report Type: Report from Study
  Country: CA (occurrence: CA)
  Receive Date: 20180403
  Receipt Date: 20180418
  Transmission Date: 20180711
  Serious: Yes (Other)
  Sender: FDA-Public Use
  Company Number: CA-GLAXOSMITHKLINE-CA2018GSK055280

PATIENT
  Age: 58 Year
  Sex: Female

DRUGS (1)
  1. SALBUTAMOL SULPHATE [Suspect]
     Active Substance: ALBUTEROL SULFATE
     Indication: PRODUCT USED FOR UNKNOWN INDICATION
     Dosage: UNK UNK, PRN

REACTIONS (5)
  - Pneumonia [Recovering/Resolving]
  - Respiratory tract congestion [Unknown]
  - Influenza [Unknown]
  - Cough [Unknown]
  - Bronchitis [Unknown]

NARRATIVE: CASE EVENT DATE: 201803
